FAERS Safety Report 16961438 (Version 3)
Quarter: 2022Q3

REPORT INFORMATION
  Report Type: Spontaneous
  Country: DE (occurrence: DE)
  Receive Date: 20191025
  Receipt Date: 20220720
  Transmission Date: 20221027
  Serious: Yes (Death, Other)
  Sender: FDA-Public Use
  Company Number: DE-PFIZER INC-2019459367

PATIENT
  Age: 60 Year
  Sex: Male

DRUGS (15)
  1. METHYLPREDNISOLONE [Suspect]
     Active Substance: METHYLPREDNISOLONE
     Indication: Encephalitis autoimmune
     Dosage: UNK
     Dates: start: 2017
  2. METHYLPREDNISOLONE [Suspect]
     Active Substance: METHYLPREDNISOLONE
     Dosage: 500 MG
  3. METHYLPREDNISOLONE [Suspect]
     Active Substance: METHYLPREDNISOLONE
     Dosage: 1 G
  4. PREDNISOLONE [Suspect]
     Active Substance: PREDNISOLONE
     Indication: Encephalitis autoimmune
     Dosage: UNK
     Route: 048
  5. PREDNISOLONE [Suspect]
     Active Substance: PREDNISOLONE
     Dosage: 5 MG, DAILY
     Route: 048
     Dates: start: 2017
  6. BORTEZOMIB [Suspect]
     Active Substance: BORTEZOMIB
     Indication: Encephalitis autoimmune
     Dosage: UNK, CYCLIC (1-1.3 MG/M2, THREE CYCLES)
     Dates: start: 2018
  7. RITUXIMAB [Suspect]
     Active Substance: RITUXIMAB
     Indication: Encephalitis autoimmune
     Dosage: 1 G
     Dates: start: 2017
  8. HUMAN IMMUNOGLOBULIN G [Suspect]
     Active Substance: HUMAN IMMUNOGLOBULIN G
     Indication: Encephalitis autoimmune
     Dosage: 2 G/KG
     Route: 042
     Dates: start: 2017
  9. DARATUMUMAB [Suspect]
     Active Substance: DARATUMUMAB
     Indication: Encephalitis autoimmune
     Dosage: 16 MG/KG, CYCLIC (13 CYCLES)
     Dates: start: 2018
  10. COTRIMOXAZOLE [Concomitant]
     Active Substance: SULFAMETHOXAZOLE\TRIMETHOPRIM
     Indication: Infection prophylaxis
     Dosage: 960 MG, THRICE WEEKLY
  11. ACYCLOVIR [Concomitant]
     Active Substance: ACYCLOVIR
     Indication: Infection prophylaxis
     Dosage: 200 MG, DAILY
  12. HUMAN PLASMA [Concomitant]
     Active Substance: HUMAN PLASMA
     Indication: Encephalitis autoimmune
     Dosage: 6
  13. HUMAN PLASMA [Concomitant]
     Active Substance: HUMAN PLASMA
     Dosage: 12
  14. HUMAN PLASMA [Concomitant]
     Active Substance: HUMAN PLASMA
     Dosage: 25
  15. HUMAN PLASMA [Concomitant]
     Active Substance: HUMAN PLASMA
     Dosage: 8

REACTIONS (2)
  - Septic shock [Fatal]
  - Bacterial infection [Fatal]
